FAERS Safety Report 6385260-2 (Version None)
Quarter: 2009Q4

REPORT INFORMATION
  Report Type: 
  Country: None (occurrence: None)
  Receive Date: 20091002
  Receipt Date: 20081106
  Transmission Date: 20100525
  Serious: No
  Sender: FDA-Public Use
  Company Number: US-ASTRAZENECA-2008UW15053

PATIENT
  Age: 30174 Day
  Sex: Female
  Weight: 85.7 kg

DRUGS (6)
  1. ARIMIDEX [Suspect]
     Indication: BREAST CANCER
     Route: 048
     Dates: start: 20080601
  2. NEXIUM [Concomitant]
  3. CALCIUM [Concomitant]
  4. TAMOXIFEN CITRATE [Concomitant]
     Dates: start: 20080601, end: 20080601
  5. MULTI-VITAMIN [Concomitant]
  6. FOSAMAX [Concomitant]

REACTIONS (6)
  - ALOPECIA [None]
  - ARTHRALGIA [None]
  - FIBROMYALGIA [None]
  - HOT FLUSH [None]
  - NAIL DISORDER [None]
  - SLEEP DISORDER [None]
